FAERS Safety Report 24808134 (Version 1)
Quarter: 2025Q1

REPORT INFORMATION
  Report Type: Spontaneous
  Country: RU (occurrence: RU)
  Receive Date: 20250106
  Receipt Date: 20250106
  Transmission Date: 20250409
  Serious: Yes (Other)
  Sender: SANOFI AVENTIS
  Company Number: RU-SA-2025SA000668

PATIENT
  Age: 47 Year
  Sex: Female
  Weight: 70 kg

DRUGS (8)
  1. PREDNISOLONE [Suspect]
     Active Substance: PREDNISOLONE
     Indication: Rheumatoid arthritis
     Route: 048
     Dates: end: 20241122
  2. PREDNISOLONE [Suspect]
     Active Substance: PREDNISOLONE
     Route: 048
     Dates: start: 202412
  3. ARAVA [Suspect]
     Active Substance: LEFLUNOMIDE
     Indication: Rheumatoid arthritis
     Dosage: 20 MG, QD
     Dates: start: 20240417, end: 20241122
  4. NORFLOXACIN [Suspect]
     Active Substance: NORFLOXACIN
     Indication: Bacteriuria
     Dosage: 400 MG, TID
     Route: 048
     Dates: start: 20241102, end: 20241107
  5. MELOXICAM [Suspect]
     Active Substance: MELOXICAM
     Indication: Rheumatoid arthritis
     Route: 030
     Dates: start: 20241219
  6. OLOKIZUMAB [Suspect]
     Active Substance: OLOKIZUMAB
     Indication: Rheumatoid arthritis
     Dosage: 64 MG, Q4W
     Route: 058
     Dates: start: 20240417, end: 20241128
  7. PERINDOPRIL ERBUMINE [Concomitant]
     Active Substance: PERINDOPRIL ERBUMINE
     Indication: Hypertension
     Dosage: 4 MG, QD (4MG/DAY, LONG-TERM USE)
  8. EUTHYROX [Concomitant]
     Active Substance: LEVOTHYROXINE SODIUM
     Dosage: 50 MG, QD

REACTIONS (9)
  - Eye swelling [Recovered/Resolved]
  - Eye swelling [Recovered/Resolved]
  - Papule [Unknown]
  - Angular cheilitis [Unknown]
  - Rheumatoid arthritis [Recovering/Resolving]
  - Dry mouth [Unknown]
  - Dry skin [Unknown]
  - Pruritus [Recovering/Resolving]
  - Nasal crusting [Unknown]

NARRATIVE: CASE EVENT DATE: 20241101
